FAERS Safety Report 14177258 (Version 1)
Quarter: 2017Q4

REPORT INFORMATION
  Report Type: Report from Study
  Country: US (occurrence: US)
  Receive Date: 20171110
  Receipt Date: 20171110
  Transmission Date: 20180321
  Serious: Yes (Other)
  Sender: FDA-Public Use
  Company Number: US-ROCHE-2018433

PATIENT

DRUGS (5)
  1. RITUXIMAB. [Suspect]
     Active Substance: RITUXIMAB
     Indication: PLASMA CELL MYELOMA
     Dosage: DAY - 22 AND ON DAY -14
     Route: 042
  2. IBRITUMOMAB TIUXETAN/INDIUM-111 [Suspect]
     Active Substance: IBRITUMOMAB TIUXETAN
     Indication: PLASMA CELL MYELOMA
     Route: 065
  3. IBRITUMOMAB TIUXETAN/YTTRIUM-90 [Suspect]
     Active Substance: IBRITUMOMAB TIUXETAN
     Indication: PLASMA CELL MYELOMA
     Route: 065
  4. SARGRAMOSTIM [Suspect]
     Active Substance: SARGRAMOSTIM
     Indication: PLASMA CELL MYELOMA
     Route: 065
  5. MELPHALAN. [Suspect]
     Active Substance: MELPHALAN
     Indication: PLASMA CELL MYELOMA
     Route: 065

REACTIONS (9)
  - Sepsis [Unknown]
  - Atrial tachycardia [Unknown]
  - Bone marrow failure [Unknown]
  - Metabolic disorder [Unknown]
  - Orthostatic hypotension [Unknown]
  - Cardiac failure congestive [Unknown]
  - Bacteraemia [Unknown]
  - Febrile neutropenia [Unknown]
  - Gastrointestinal disorder [Unknown]
